FAERS Safety Report 4311885-1 (Version None)
Quarter: 2004Q1

REPORT INFORMATION
  Report Type: 
  Country: None (occurrence: None)
  Receive Date: 20040302
  Receipt Date: 20031121
  Transmission Date: 20041129
  Serious: No
  Sender: FDA-Public Use
  Company Number: 200328847BWH

PATIENT
  Age: 57 Year
  Sex: Male
  Weight: 102.9665 kg

DRUGS (10)
  1. LEVITRA [Suspect]
     Indication: ERECTILE DYSFUNCTION
     Dosage: 10 MG, TOTAL DAILY, ORAL
     Route: 048
     Dates: start: 20031121
  2. COZAAR [Concomitant]
  3. NORVASC [Concomitant]
  4. PREDNISONE [Concomitant]
  5. THEOPHYLLINE [Concomitant]
  6. SINGULAIR [Concomitant]
  7. ECHINACEA [Concomitant]
  8. GLUCOSAMINE [Concomitant]
  9. GINKGO BILOBA WITH VINPOCETINE [Concomitant]
  10. VIAGRA [Concomitant]

REACTIONS (1)
  - HEADACHE [None]
